FAERS Safety Report 4735103-5 (Version None)
Quarter: 2005Q3

REPORT INFORMATION
  Report Type: 
  Country: None (occurrence: None)
  Receive Date: 20050804
  Receipt Date: 20050729
  Transmission Date: 20060218
  Serious: Yes (Hospitalization)
  Sender: FDA-Public Use
  Company Number: IT-MERCK-0508ITA00001

PATIENT
  Age: 51 Year
  Sex: Male

DRUGS (2)
  1. VIOXX [Suspect]
     Indication: SPINAL OSTEOARTHRITIS
     Route: 048
     Dates: start: 20020301, end: 20040928
  2. VIOXX [Suspect]
     Indication: OSTEOARTHRITIS
     Route: 048
     Dates: start: 20020301, end: 20040928

REACTIONS (8)
  - ABDOMINAL PAIN UPPER [None]
  - ANXIETY DISORDER [None]
  - HYPERHIDROSIS [None]
  - HYPERTENSION [None]
  - INSOMNIA [None]
  - MYOCARDIAL INFARCTION [None]
  - VERTIGO [None]
  - VISUAL ACUITY REDUCED [None]
